FAERS Safety Report 24141613 (Version 2)
Quarter: 2024Q3

REPORT INFORMATION
  Report Type: Spontaneous
  Country: ES (occurrence: None)
  Receive Date: 20240726
  Receipt Date: 20240809
  Transmission Date: 20241017
  Serious: Yes (Life-Threatening, Hospitalization)
  Sender: ASTRAZENECA
  Company Number: 2024A168604

PATIENT
  Age: 76 Year
  Sex: Male

DRUGS (5)
  1. OMEPRAZOLE [Suspect]
     Active Substance: OMEPRAZOLE
     Dates: start: 20240625
  2. METAMIZOL [Suspect]
     Active Substance: METAMIZOLE SODIUM
     Dosage: 2.000 MG INJECTABLE 5 ML
     Dates: start: 20240625
  3. VOLTAREN [Suspect]
     Active Substance: DICLOFENAC SODIUM
     Indication: Back pain
     Dosage: 40 TABLETS; X 40 MILLIGRAM IN 1 DAY // 40 MILLIGRAM
     Dates: start: 20240625, end: 20240626
  4. VALSARTAN [Concomitant]
     Active Substance: VALSARTAN
     Dosage: 80 MG/12.5 MG
     Route: 048
     Dates: start: 20240111, end: 20240713
  5. DUTASTERIDA/TAMSULOSINA [Concomitant]
     Dosage: 0.5 MG/0.4 MG 30 CAPSULES
     Dates: start: 20220609

REACTIONS (2)
  - Tubulointerstitial nephritis [Recovering/Resolving]
  - Multiple organ dysfunction syndrome [Recovering/Resolving]

NARRATIVE: CASE EVENT DATE: 20240627
